FAERS Safety Report 19278673 (Version 2)
Quarter: 2021Q2

REPORT INFORMATION
  Report Type: Report from Study
  Country: None (occurrence: US)
  Receive Date: 20210520
  Receipt Date: 20210621
  Transmission Date: 20210717
  Serious: No
  Sender: FDA-Public Use
  Company Number: US-ABBVIE-21K-163-3906932-00

PATIENT
  Age: 64 Year
  Sex: Male

DRUGS (4)
  1. HUMIRA [Suspect]
     Active Substance: ADALIMUMAB
     Indication: EYE INFLAMMATION
  2. HUMIRA [Suspect]
     Active Substance: ADALIMUMAB
     Indication: CROHN^S DISEASE
  3. HUMIRA [Suspect]
     Active Substance: ADALIMUMAB
     Indication: BLEPHARITIS
     Dosage: DAY 1
     Route: 058
     Dates: start: 20210512, end: 20210512
  4. HUMIRA [Suspect]
     Active Substance: ADALIMUMAB
     Indication: SCLERITIS

REACTIONS (2)
  - Off label use [Unknown]
  - Wrong technique in product usage process [Recovered/Resolved]

NARRATIVE: CASE EVENT DATE: 202105
